FAERS Safety Report 6905102-3 (Version None)
Quarter: 2010Q3

REPORT INFORMATION
  Report Type: 
  Country: None (occurrence: None)
  Receive Date: 20100804
  Receipt Date: 20090925
  Transmission Date: 20110219
  Serious: Yes (Other)
  Sender: FDA-Public Use
  Company Number: US-PFIZER INC-2009243640

PATIENT

DRUGS (1)
  1. LYRICA [Suspect]

REACTIONS (3)
  - FATIGUE [None]
  - HALLUCINATION [None]
  - OEDEMA [None]
